FAERS Safety Report 5683374-3 (Version None)
Quarter: 2008Q1

REPORT INFORMATION
  Report Type: 
  Country: None (occurrence: None)
  Receive Date: 20080327
  Receipt Date: 20080318
  Transmission Date: 20080703
  Serious: Yes (Hospitalization)
  Sender: FDA-Public Use
  Company Number: DE-ABBOTT-08P-062-0442959-00

PATIENT
  Sex: Female

DRUGS (4)
  1. HUMIRA [Suspect]
     Indication: RHEUMATOID ARTHRITIS
     Route: 058
     Dates: start: 20070730, end: 20080301
  2. CORTISONE [Concomitant]
     Indication: RHEUMATOID ARTHRITIS
  3. CARDIAC DRUGS [Concomitant]
     Indication: CARDIAC DISORDER
  4. DRUG FOR THYROID DISEASE [Concomitant]
     Indication: THYROID DISORDER

REACTIONS (1)
  - INFLAMMATION [None]
